FAERS Safety Report 5943175-5 (Version None)
Quarter: 2008Q4

REPORT INFORMATION
  Report Type: 
  Country: None (occurrence: None)
  Receive Date: 20081106
  Receipt Date: 20081031
  Transmission Date: 20090506
  Serious: Yes (Hospitalization)
  Sender: FDA-Public Use
  Company Number: A0754906A

PATIENT
  Age: 86 Year
  Sex: Male

DRUGS (1)
  1. VALTREX [Suspect]
     Indication: HERPES ZOSTER
     Route: 065

REACTIONS (3)
  - BLOOD CREATININE INCREASED [None]
  - HALLUCINATION [None]
  - INCORRECT DOSE ADMINISTERED [None]
